FAERS Safety Report 5770452-3 (Version None)
Quarter: 2008Q2

REPORT INFORMATION
  Report Type: 
  Country: None (occurrence: None)
  Receive Date: 20080613
  Receipt Date: 20080430
  Transmission Date: 20081010
  Serious: No
  Sender: FDA-Public Use
  Company Number: US-ABBOTT-08P-163-0449878-00

PATIENT
  Sex: Female
  Weight: 64.922 kg

DRUGS (3)
  1. HUMIRA [Suspect]
     Indication: RHEUMATOID ARTHRITIS
     Route: 058
     Dates: start: 20060801, end: 20080201
  2. HUMIRA [Suspect]
     Route: 058
     Dates: start: 20080429
  3. METHOTREXATE [Concomitant]
     Indication: RHEUMATOID ARTHRITIS
     Route: 048

REACTIONS (3)
  - EAR INFECTION [None]
  - GINGIVAL ULCERATION [None]
  - SINUSITIS [None]
